FAERS Safety Report 8778199 (Version 1)
Quarter: 2012Q4

REPORT INFORMATION
  Report Type: 
  Country: NO (occurrence: NO)
  Receive Date: 20120911
  Receipt Date: 20120911
  Transmission Date: 20130627
  Serious: Yes (Disabling, Other)
  Sender: FDA-Public Use
  Company Number: NO-JNJFOC-20120815039

PATIENT
  Age: 60 Year
  Sex: Female

DRUGS (1)
  1. HALDOL [Suspect]
     Indication: AGGRESSION
     Route: 065
     Dates: start: 2009

REACTIONS (9)
  - Physical disability [Unknown]
  - Dementia [Unknown]
  - Medication error [Unknown]
  - Aggression [Unknown]
  - Toothache [Unknown]
  - Neck mass [Unknown]
  - Dyskinesia [Unknown]
  - Abnormal behaviour [Unknown]
  - Abasia [Unknown]
